FAERS Safety Report 9167768 (Version 3)
Quarter: 2013Q3

REPORT INFORMATION
  Report Type: Report from Study
  Country: MX (occurrence: MX)
  Receive Date: 20130318
  Receipt Date: 20130729
  Transmission Date: 20140515
  Serious: Yes (Death)
  Sender: FDA-Public Use
  Company Number: PHHY2011MX105947

PATIENT
  Age: 97 Year
  Sex: Female

DRUGS (1)
  1. EXELON PATCH [Suspect]
     Indication: DEMENTIA ALZHEIMER^S TYPE
     Dosage: 4.6 MG (PATCH 5 CM2), DAILY
     Route: 062
     Dates: start: 201105, end: 201207

REACTIONS (8)
  - Disease progression [Fatal]
  - Ear discomfort [Unknown]
  - Tympanic membrane perforation [Unknown]
  - Ear haemorrhage [Unknown]
  - Pharyngitis [Unknown]
  - Fatigue [Unknown]
  - Asthenia [Unknown]
  - Drug ineffective [Unknown]
